FAERS Safety Report 5082844-9 (Version None)
Quarter: 2006Q3

REPORT INFORMATION
  Report Type: 
  Country: None (occurrence: None)
  Receive Date: 20060817
  Receipt Date: 20050106
  Transmission Date: 20061208
  Serious: Yes (Hospitalization, Other)
  Sender: FDA-Public Use
  Company Number: US-ABBOTT-05P-163-0285693-00

PATIENT
  Sex: Female
  Weight: 79.45 kg

DRUGS (9)
  1. HUMIRA [Suspect]
     Indication: RHEUMATOID ARTHRITIS
     Route: 058
     Dates: start: 20030711, end: 20041209
  2. BUCINDOLOL HYDROCHLORIDE [Suspect]
     Indication: RHEUMATOID ARTHRITIS
     Route: 048
     Dates: start: 20030101, end: 20041224
  3. TAMOXIFEN CITRATE [Concomitant]
     Indication: BREAST CANCER
     Route: 048
  4. PREDNISONE [Concomitant]
     Indication: RHEUMATOID ARTHRITIS
     Route: 048
     Dates: start: 20030103, end: 20041224
  5. PREDNISONE [Concomitant]
     Dosage: 5-18MG
     Route: 048
     Dates: start: 20030101, end: 20041224
  6. METHOTREXATE SODIUM [Concomitant]
     Indication: RHEUMATOID ARTHRITIS
     Route: 048
     Dates: start: 20030103, end: 20041224
  7. METHOTREXATE SODIUM [Concomitant]
     Dates: start: 20030101, end: 20041224
  8. FOLIC ACID [Concomitant]
     Indication: RHEUMATOID ARTHRITIS
     Route: 048
     Dates: end: 20050103
  9. VALSARTAN [Concomitant]
     Indication: DRUG USE FOR UNKNOWN INDICATION
     Route: 048

REACTIONS (6)
  - BALANCE DISORDER [None]
  - CENTRAL NERVOUS SYSTEM LYMPHOMA [None]
  - GASTRIC ULCER [None]
  - LYMPHOMA [None]
  - MEMORY IMPAIRMENT [None]
  - RENAL FAILURE [None]
